FAERS Safety Report 10583073 (Version 3)
Quarter: 2015Q2

REPORT INFORMATION
  Report Type: Report from Study
  Country: CA (occurrence: CA)
  Receive Date: 20141114
  Receipt Date: 20150508
  Transmission Date: 20150821
  Serious: Yes (Other)
  Sender: FDA-Public Use
  Company Number: CA-ROCHE-1244541

PATIENT
  Age: 57 Year
  Sex: Female

DRUGS (10)
  1. EPREX [Suspect]
     Active Substance: ERYTHROPOIETIN
     Route: 065
     Dates: start: 20130617, end: 20131029
  2. RIBAVIRIN. [Suspect]
     Active Substance: RIBAVIRIN
     Indication: HEPATITIS C
     Dosage: DAILY, DOSAGE AT START, HAD MULTIPLE DOSE ADJUSTMENTS?THERAPY DURATION: 198 DAYS
     Route: 048
     Dates: start: 20130418, end: 20131101
  3. PRISTIQ EXTENDED RELEASE [Suspect]
     Active Substance: DESVENLAFAXINE SUCCINATE
     Indication: DEPRESSION
     Route: 048
  4. SYNTHROID [Concomitant]
     Active Substance: LEVOTHYROXINE SODIUM
     Indication: HYPOPARATHYROIDISM
  5. WELLBUTRIN [Concomitant]
     Active Substance: BUPROPION HYDROCHLORIDE
     Indication: DEPRESSION
     Route: 048
  6. VICTRELIS [Suspect]
     Active Substance: BOCEPREVIR
     Indication: CHRONIC HEPATITIS C
     Dosage: THERAPY DURATION: 170 DAYS
     Route: 048
     Dates: start: 20130516, end: 20131101
  7. PEGASYS [Suspect]
     Active Substance: PEGINTERFERON ALFA-2A
     Indication: CHRONIC HEPATITIS C
     Dosage: THERAPY DURATION: 198 DAYS
     Route: 058
     Dates: start: 20130418, end: 20131101
  8. EPREX [Suspect]
     Active Substance: ERYTHROPOIETIN
     Indication: PRODUCT USED FOR UNKNOWN INDICATION
     Dosage: X40 WEEEKS
     Route: 058
     Dates: start: 20110607, end: 20111212
  9. LORAZEPAM. [Concomitant]
     Active Substance: LORAZEPAM
     Indication: SLEEP DISORDER
     Dosage: AT NIGHT TO HELP PATIENT SLEEP
     Route: 048
  10. EPREX [Suspect]
     Active Substance: ERYTHROPOIETIN
     Dosage: CONTIUED AT DECREASED DOSAGE EVERY 2 WEEK
     Route: 065
     Dates: end: 20130516

REACTIONS (7)
  - Vomiting [Not Recovered/Not Resolved]
  - Hypothyroidism [Not Recovered/Not Resolved]
  - Medication error [Unknown]
  - Dysgeusia [Not Recovered/Not Resolved]
  - Product quality issue [Unknown]
  - Diarrhoea [Not Recovered/Not Resolved]
  - Nausea [Not Recovered/Not Resolved]

NARRATIVE: CASE EVENT DATE: 20130418
